FAERS Safety Report 5675071-5 (Version None)
Quarter: 2008Q1

REPORT INFORMATION
  Report Type: 
  Country: None (occurrence: None)
  Receive Date: 20080320
  Receipt Date: 20080318
  Transmission Date: 20080703
  Serious: Yes (Other)
  Sender: FDA-Public Use
  Company Number: US-BRISTOL-MYERS SQUIBB COMPANY-14041560

PATIENT
  Age: 60 Year
  Sex: Male

DRUGS (5)
  1. COUMADIN [Suspect]
     Indication: PHLEBITIS
  2. COUMADIN [Suspect]
     Indication: PULMONARY EMBOLISM
  3. COUMADIN [Suspect]
     Indication: VENA CAVA FILTER INSERTION
  4. CALCIUM [Concomitant]
  5. VITAMIN D [Concomitant]

REACTIONS (4)
  - BONE DENSITY DECREASED [None]
  - DERMATITIS [None]
  - VENA CAVA THROMBOSIS [None]
  - VENOUS PRESSURE INCREASED [None]
